FAERS Safety Report 4427713-X (Version None)
Quarter: 2004Q3

REPORT INFORMATION
  Report Type: 
  Country: None (occurrence: None)
  Receive Date: 20040812
  Receipt Date: 20040730
  Transmission Date: 20050211
  Serious: Yes (Life-Threatening)
  Sender: FDA-Public Use
  Company Number: 2004227269FR

PATIENT
  Age: 62 Year
  Sex: Female

DRUGS (7)
  1. ALDACTONE [Suspect]
     Dosage: 50 MG, QD, ORAL
     Route: 048
     Dates: end: 20040704
  2. LASIX [Concomitant]
  3. RAMIPRIL [Concomitant]
  4. ATACAND [Concomitant]
  5. CORDARONE [Concomitant]
  6. ASPIRIN [Concomitant]
  7. SINTROM [Concomitant]

REACTIONS (4)
  - ASTHENIA [None]
  - CHEST WALL PAIN [None]
  - HYPERKALAEMIA [None]
  - HYPONATRAEMIA [None]
